FAERS Safety Report 4773025-4 (Version None)
Quarter: 2005Q3

REPORT INFORMATION
  Report Type: 
  Country: None (occurrence: None)
  Receive Date: 20050916
  Receipt Date: 20050916
  Transmission Date: 20060218
  Serious: Yes (Hospitalization)
  Sender: FDA-Public Use
  Company Number: None

PATIENT
  Sex: Male
  Weight: 91 kg

DRUGS (4)
  1. TEMAZOLOMIDE [Suspect]
     Indication: GLIOBLASTOMA MULTIFORME
     Dosage: SEE IMAGE
     Dates: start: 20050824
  2. IRINOTECAN HCL [Suspect]
     Dosage: SEE IMAGE
     Dates: start: 20050824
  3. RADIATION THERAPY [Suspect]
     Dosage: SEE IMAGE
     Dates: start: 20050824
  4. DEXAMETHASONE [Concomitant]

REACTIONS (5)
  - ASTHENIA [None]
  - DIFFICULTY IN WALKING [None]
  - GAIT DISTURBANCE [None]
  - HYPERGLYCAEMIA [None]
  - IMPAIRED SELF-CARE [None]
